FAERS Safety Report 9467893 (Version 1)
Quarter: 2013Q3

REPORT INFORMATION
  Report Type: Report from Study
  Country: US (occurrence: US)
  Receive Date: 20130821
  Receipt Date: 20130821
  Transmission Date: 20140515
  Serious: No
  Sender: FDA-Public Use
  Company Number: PHEH2013US017717

PATIENT
  Age: 75 Year
  Sex: Male

DRUGS (12)
  1. TASIGNA [Suspect]
     Indication: CHRONIC MYELOID LEUKAEMIA
     Dosage: 150 MG, BID
  2. LIPITOR [Concomitant]
  3. PROCHLORPERAZINE [Concomitant]
  4. ASPIRIN [Concomitant]
  5. LISINOPRIL [Concomitant]
  6. VALTREX [Concomitant]
  7. PROZAC [Concomitant]
  8. LEXAPRO [Concomitant]
  9. ZYRTEC [Concomitant]
  10. VITAMIIN C [Concomitant]
  11. IRON [Concomitant]
  12. VITAMIN B12 [Concomitant]

REACTIONS (1)
  - Rash [Not Recovered/Not Resolved]
